FAERS Safety Report 9261823 (Version 2)
Quarter: 2013Q3

REPORT INFORMATION
  Report Type: Report from Study
  Country: US (occurrence: US)
  Receive Date: 20130429
  Receipt Date: 20130708
  Transmission Date: 20140515
  Serious: Yes (Other)
  Sender: FDA-Public Use
  Company Number: US-US-EMD SERONO, INC.-7207422

PATIENT
  Age: 57 Year
  Sex: Female
  Weight: 44 kg

DRUGS (7)
  1. REBIF [Suspect]
     Indication: MULTIPLE SCLEROSIS
     Dates: start: 201206, end: 201212
  2. REBIF [Suspect]
     Dates: start: 201212, end: 201301
  3. REBIF [Suspect]
     Dates: start: 20120425, end: 201206
  4. MORPHINE [Concomitant]
     Indication: PAIN
     Route: 048
  5. AMANTADINE [Concomitant]
     Indication: FATIGUE
  6. FLONASE [Concomitant]
     Indication: RHINITIS ALLERGIC
  7. VITAMIN D3 [Concomitant]
     Indication: PRODUCT USED FOR UNKNOWN INDICATION

REACTIONS (6)
  - Suicidal ideation [Recovered/Resolved]
  - Depression [Recovered/Resolved]
  - Blood test abnormal [Unknown]
  - Malaise [Unknown]
  - Myalgia [Unknown]
  - Headache [Unknown]
